FAERS Safety Report 4864759-1 (Version None)
Quarter: 2005Q4

REPORT INFORMATION
  Report Type: 
  Country: None (occurrence: None)
  Receive Date: 20051222
  Receipt Date: 20050926
  Transmission Date: 20060501
  Serious: Yes (Hospitalization)
  Sender: FDA-Public Use
  Company Number: US-MERCK-0509USA04148

PATIENT
  Age: 41 Year
  Sex: Male
  Weight: 82 kg

DRUGS (16)
  1. VIOXX [Suspect]
     Indication: BACK INJURY
     Route: 048
     Dates: start: 19990101, end: 20020917
  2. VIOXX [Suspect]
     Indication: ARTHRITIS
     Route: 048
     Dates: start: 19990101, end: 20020917
  3. MOTRIN [Concomitant]
     Indication: PAIN
     Route: 065
     Dates: start: 19990101
  4. LOPID [Concomitant]
     Indication: BLOOD CHOLESTEROL INCREASED
     Route: 065
     Dates: start: 19950101
  5. PEPCID [Concomitant]
     Indication: DYSPEPSIA
     Route: 065
  6. FLEXERIL [Concomitant]
     Indication: ARTHRITIS
     Route: 065
     Dates: start: 19990101
  7. SYNTHROID [Concomitant]
     Route: 065
     Dates: start: 19960101
  8. ADVAIR DISKUS 250/50 [Concomitant]
     Indication: ASTHMA
     Route: 065
  9. SINGULAIR [Concomitant]
     Indication: ASTHMA
     Route: 065
  10. ZOVIRAX [Concomitant]
     Indication: HERPES VIRUS INFECTION
     Route: 065
  11. ALLEGRA [Concomitant]
     Indication: HYPERSENSITIVITY
     Route: 065
  12. ULTRAM [Concomitant]
     Indication: ARTHRITIS
     Route: 065
     Dates: start: 19950101
  13. ZOLOFT [Concomitant]
     Indication: DEPRESSION
     Route: 065
  14. BUSPAR [Concomitant]
     Indication: ANXIETY
     Route: 065
  15. SEROQUEL [Concomitant]
     Indication: BIPOLAR DISORDER
     Route: 065
  16. ALBUTEROL [Concomitant]
     Indication: ASTHMA
     Route: 065

REACTIONS (3)
  - ANGINA PECTORIS [None]
  - DYSPNOEA [None]
  - MYOCARDIAL INFARCTION [None]
